FAERS Safety Report 8996973 (Version 1)
Quarter: 2013Q1

REPORT INFORMATION
  Report Type: Spontaneous
  Country: IE (occurrence: IE)
  Receive Date: 20130104
  Receipt Date: 20130104
  Transmission Date: 20140127
  Serious: Yes (Hospitalization)
  Sender: FDA-Public Use
  Company Number: IE-ELI_LILLY_AND_COMPANY-IE201212008366

PATIENT
  Sex: Female

DRUGS (8)
  1. FORSTEO [Suspect]
     Indication: OSTEOPOROSIS
     Dosage: 20 UG, QD
     Dates: start: 20110721, end: 201212
  2. FORSTEO [Suspect]
     Dosage: 20 UG, QD
     Route: 058
     Dates: start: 20121222
  3. ARIMIDEX [Concomitant]
  4. CARDICOR [Concomitant]
  5. PREDNISOLONE [Concomitant]
  6. OMEGA 3 [Concomitant]
  7. ANXICALM [Concomitant]
  8. CALCICHEW D3 [Concomitant]

REACTIONS (2)
  - Palpitations [Unknown]
  - Epistaxis [Recovered/Resolved]
